FAERS Safety Report 26113638 (Version 1)
Quarter: 2025Q4

REPORT INFORMATION
  Report Type: Spontaneous
  Country: JP (occurrence: JP)
  Receive Date: 20251202
  Receipt Date: 20251202
  Transmission Date: 20260119
  Serious: Yes (Life-Threatening, Hospitalization, Other)
  Sender: B. BRAUN MEDICAL INC.
  Company Number: JP-B. Braun Medical Inc.-JP-BBM-202504531

PATIENT
  Age: 73 Year
  Sex: Male

DRUGS (4)
  1. HEPARIN [Suspect]
     Active Substance: HEPARIN SODIUM
     Indication: Percutaneous coronary intervention
  2. CANDESARTAN [Concomitant]
     Active Substance: CANDESARTAN
  3. CARVEDILOL [Concomitant]
     Active Substance: CARVEDILOL
  4. ROSUVASTATIN [Concomitant]
     Active Substance: ROSUVASTATIN

REACTIONS (1)
  - Coronary artery perforation [Recovered/Resolved]
